FAERS Safety Report 9234233 (Version 3)
Quarter: 2013Q3

REPORT INFORMATION
  Report Type: Spontaneous
  Country: FR (occurrence: FR)
  Receive Date: 20130416
  Receipt Date: 20130731
  Transmission Date: 20140515
  Serious: Yes (Hospitalization)
  Sender: FDA-Public Use
  Company Number: FR-ROCHE-1214618

PATIENT
  Age: 58 Year
  Sex: Male

DRUGS (15)
  1. AVASTIN [Suspect]
     Indication: PRODUCT USED FOR UNKNOWN INDICATION
     Route: 042
     Dates: start: 20121122, end: 20121122
  2. SOLU-MEDROL [Suspect]
     Indication: PRODUCT USED FOR UNKNOWN INDICATION
     Route: 042
     Dates: start: 20121122, end: 20121122
  3. FLUOROURACIL [Suspect]
     Indication: PRODUCT USED FOR UNKNOWN INDICATION
     Route: 042
     Dates: start: 20121122, end: 20121122
  4. FLUOROURACIL [Suspect]
     Dosage: DOSE REDUCED 50%
     Route: 065
     Dates: start: 20130321
  5. FLUOROURACIL [Suspect]
     Dosage: REDUCED DOSE
     Route: 065
     Dates: start: 20130411
  6. FLUOROURACIL [Suspect]
     Dosage: REDUCED DOSE
     Route: 065
     Dates: start: 20130425
  7. IRINOTECAN [Suspect]
     Indication: PRODUCT USED FOR UNKNOWN INDICATION
     Route: 042
     Dates: start: 20121122, end: 20121122
  8. IRINOTECAN [Suspect]
     Dosage: REDUCED DOSE
     Route: 065
     Dates: start: 20130321
  9. IRINOTECAN [Suspect]
     Dosage: REDUCED DOSE
     Route: 065
     Dates: start: 20130411
  10. IRINOTECAN [Suspect]
     Dosage: REDUCED DOSE
     Route: 065
     Dates: start: 20130425
  11. OXALIPLATIN [Suspect]
     Indication: PRODUCT USED FOR UNKNOWN INDICATION
     Dosage: 3 COURSES CHEMOTHERAPY BETWEEN OCT/2012 AND NOV/2012
     Route: 065
  12. OXALIPLATIN [Suspect]
     Dosage: DOSE REDUCED 30%
     Route: 065
     Dates: start: 20130321
  13. OXALIPLATIN [Suspect]
     Dosage: DOSE REDUCED 30%
     Route: 065
     Dates: start: 20130411
  14. OXALIPLATIN [Suspect]
     Dosage: DOSE REDUCED 30%
     Route: 065
     Dates: start: 20130425
  15. FOLINIC ACID [Suspect]
     Indication: PRODUCT USED FOR UNKNOWN INDICATION
     Dosage: 3 COURSES CHEMOTHERAPY BETWEEN OCT/2012 AND NOV/2012
     Route: 065

REACTIONS (2)
  - Dysphagia [Recovered/Resolved]
  - Oesophagitis [Recovered/Resolved]
